FAERS Safety Report 14878874 (Version 3)
Quarter: 2018Q3

REPORT INFORMATION
  Report Type: Spontaneous
  Country: US (occurrence: US)
  Receive Date: 20180511
  Receipt Date: 20180704
  Transmission Date: 20181010
  Serious: No
  Sender: FDA-Public Use
  Company Number: US-CELGENEUS-USA-20180409311

PATIENT
  Age: 66 Year
  Sex: Female

DRUGS (2)
  1. OTEZLA [Suspect]
     Active Substance: APREMILAST
     Indication: PSORIASIS
     Dosage: 60 MILLIGRAM
     Route: 048
     Dates: start: 20171217, end: 201801
  2. OTEZLA [Suspect]
     Active Substance: APREMILAST
     Dosage: 60 MILLIGRAM
     Route: 048
     Dates: start: 201801, end: 20180618

REACTIONS (8)
  - Gastroenteritis viral [Unknown]
  - Therapy non-responder [Unknown]
  - Drug dose omission [Unknown]
  - Nasopharyngitis [Unknown]
  - Depressed mood [Unknown]
  - Psoriasis [Unknown]
  - Pruritus [Unknown]
  - Bronchial disorder [Unknown]

NARRATIVE: CASE EVENT DATE: 201801
